FAERS Safety Report 7608222-3 (Version None)
Quarter: 2011Q3

REPORT INFORMATION
  Report Type: 
  Country: None (occurrence: None)
  Receive Date: 20110714
  Receipt Date: 20110705
  Transmission Date: 20111222
  Serious: Yes (Hospitalization)
  Sender: FDA-Public Use
  Company Number: US-JNJFOC-20110703673

PATIENT
  Age: 64 Year
  Sex: Female

DRUGS (12)
  1. DILAUDID [Concomitant]
     Route: 065
  2. AMBIEN [Suspect]
     Indication: PRODUCT USED FOR UNKNOWN INDICATION
     Route: 065
  3. PROTONIX [Concomitant]
     Route: 065
  4. VALIUM [Concomitant]
     Route: 065
  5. CISPLATIN [Suspect]
     Indication: OESOPHAGEAL ADENOCARCINOMA
     Route: 065
     Dates: start: 20110503
  6. ATIVAN [Suspect]
     Indication: PRODUCT USED FOR UNKNOWN INDICATION
     Route: 065
  7. CYMBALTA [Suspect]
     Indication: PRODUCT USED FOR UNKNOWN INDICATION
     Route: 065
  8. ZOFRAN [Suspect]
     Indication: PRODUCT USED FOR UNKNOWN INDICATION
     Route: 065
  9. IMODIUM [Suspect]
     Indication: DIARRHOEA
     Route: 065
  10. TAXOL [Suspect]
     Indication: OESOPHAGEAL ADENOCARCINOMA
     Route: 065
  11. RADIATION THERAPY NOS [Suspect]
     Indication: OESOPHAGEAL ADENOCARCINOMA
     Route: 065
  12. LEXAPRO [Concomitant]
     Route: 065

REACTIONS (2)
  - CONFUSIONAL STATE [None]
  - NAUSEA [None]
